FAERS Safety Report 23780250 (Version 3)
Quarter: 2024Q2

REPORT INFORMATION
  Report Type: Spontaneous
  Country: SI (occurrence: SI)
  Receive Date: 20240424
  Receipt Date: 20240521
  Transmission Date: 20240715
  Serious: Yes (Hospitalization, Other)
  Sender: FDA-Public Use
  Company Number: SI-009507513-2404SVN010317

PATIENT
  Age: 60 Year
  Sex: Male

DRUGS (4)
  1. KEYTRUDA [Suspect]
     Active Substance: PEMBROLIZUMAB
     Indication: Malignant melanoma stage II
     Dosage: 200 MILLIGRAM; 1ST DOSE
     Route: 042
     Dates: start: 20240418, end: 20240418
  2. MONOPRIL [Concomitant]
     Active Substance: FOSINOPRIL SODIUM
     Dosage: 1 TABLET IN THE EVENING;ONCE
     Route: 048
  3. FOSINOPRIL SODIUM\HYDROCHLOROTHIAZIDE [Concomitant]
     Active Substance: FOSINOPRIL SODIUM\HYDROCHLOROTHIAZIDE
     Dosage: 1 TABLET OF 20MG/12.5MG IN THE MORNING
     Route: 048
  4. LACIDIPINE [Concomitant]
     Active Substance: LACIDIPINE
     Dosage: 1 TABLET IN THE MORNING ONCE
     Route: 048

REACTIONS (3)
  - Bradycardia [Recovered/Resolved]
  - Hypotension [Recovered/Resolved]
  - Oxygen saturation decreased [Recovered/Resolved]

NARRATIVE: CASE EVENT DATE: 20240418
